FAERS Safety Report 14557107 (Version 1)
Quarter: 2018Q1

REPORT INFORMATION
  Report Type: Spontaneous
  Country: US (occurrence: HT)
  Receive Date: 20180221
  Receipt Date: 20180221
  Transmission Date: 20180509
  Serious: Yes (Other)
  Sender: FDA-Public Use
  Company Number: US-ELI_LILLY_AND_COMPANY-HT201802006319

PATIENT
  Sex: Female
  Weight: 38.6 kg

DRUGS (1)
  1. HUMALOG [Suspect]
     Active Substance: INSULIN LISPRO
     Indication: TYPE 1 DIABETES MELLITUS
     Dosage: UNK, UNKNOWN
     Route: 058

REACTIONS (4)
  - Cachexia [Not Recovered/Not Resolved]
  - Diabetic ketoacidosis [Recovering/Resolving]
  - Blood glucose increased [Recovering/Resolving]
  - Wrong patient received medication [Not Recovered/Not Resolved]
